FAERS Safety Report 9379034 (Version 3)
Quarter: 2013Q4

REPORT INFORMATION
  Report Type: Spontaneous
  Country: FR (occurrence: FR)
  Receive Date: 20130702
  Receipt Date: 20131017
  Transmission Date: 20140711
  Serious: Yes (Hospitalization)
  Sender: FDA-Public Use
  Company Number: FR-BRISTOL-MYERS SQUIBB COMPANY-19043025

PATIENT
  Age: 30 Year
  Sex: Female

DRUGS (8)
  1. REYATAZ [Suspect]
     Indication: HIV INFECTION
     Route: 048
     Dates: start: 201305
  2. NORVIR [Interacting]
     Indication: HIV INFECTION
     Route: 048
     Dates: start: 201305
  3. COLCHIMAX [Interacting]
     Indication: GOUT
     Dosage: PRESCRIBED DOSE:?1JUN2013-3MG/D?2JUN2013-2MG/D?3JUN2013-1MG/D
     Route: 048
     Dates: start: 20130602, end: 20130608
  4. TRUVADA [Suspect]
     Dates: start: 201305
  5. BACTRIM [Suspect]
  6. COLECALCIFEROL [Concomitant]
  7. INEXIUM [Concomitant]
  8. FLUCONAZOLE [Concomitant]

REACTIONS (6)
  - Vomiting [Recovered/Resolved]
  - Dyspnoea [Recovered/Resolved]
  - General physical condition abnormal [Recovered/Resolved]
  - Drug interaction [Unknown]
  - Dehydration [Recovered/Resolved]
  - Neutropenia [Recovered/Resolved]
